FAERS Safety Report 5934849-0 (Version None)
Quarter: 2008Q4

REPORT INFORMATION
  Report Type: 
  Country: None (occurrence: None)
  Receive Date: 20081027
  Receipt Date: 20081008
  Transmission Date: 20090506
  Serious: Yes (Death, Hospitalization)
  Sender: FDA-Public Use
  Company Number: 2008PL000165

PATIENT
  Age: 15 Year
  Sex: Male

DRUGS (2)
  1. AZATHIOPRINE [Suspect]
     Indication: COLITIS ULCERATIVE
     Dosage: 1 MG/KG;
  2. BOSWELLIA ACID [Concomitant]

REACTIONS (16)
  - BLOOD LACTATE DEHYDROGENASE INCREASED [None]
  - BLOOD URIC ACID INCREASED [None]
  - CENTRAL NERVOUS SYSTEM LYMPHOMA [None]
  - CEREBRAL ARTERY EMBOLISM [None]
  - EPSTEIN-BARR VIRUS INFECTION [None]
  - FATIGUE [None]
  - HAEMOGLOBIN DECREASED [None]
  - HEPATOSPLENIC T-CELL LYMPHOMA [None]
  - HISTIOCYTOSIS HAEMATOPHAGIC [None]
  - LEUKOPENIA [None]
  - LYMPHOHISTIOCYTOSIS [None]
  - MULTI-ORGAN FAILURE [None]
  - PYREXIA [None]
  - RASH [None]
  - SPLENOMEGALY [None]
  - THROMBOCYTOPENIA [None]
